FAERS Safety Report 19588961 (Version 2)
Quarter: 2021Q3

REPORT INFORMATION
  Report Type: Other
  Country: CN (occurrence: CN)
  Receive Date: 20210721
  Receipt Date: 20210813
  Transmission Date: 20211014
  Serious: Yes (Other)
  Sender: FDA-Public Use
  Company Number: CN-ROCHE-2870017

PATIENT

DRUGS (8)
  1. CYCLOPHOSPHAMIDE. [Suspect]
     Active Substance: CYCLOPHOSPHAMIDE
     Indication: BONE MARROW CONDITIONING REGIMEN
     Dosage: NON?MYELOABLATIVE, USING 50 MG/(KG/D) X 4D OR 25 MG/(KG/D) X 4D; MYELOABLATIVE, USING 50 MG/(KG/D) X
     Route: 065
  2. MYCOPHENOLATE MOFETIL. [Suspect]
     Active Substance: MYCOPHENOLATE MOFETIL
     Indication: PROPHYLAXIS AGAINST GRAFT VERSUS HOST DISEASE
     Dosage: 15 MG/M2 AT 1 DAY (+ 1 DAY), + 3 DAYS, + 6 DAYS, AND + 11 DAYS 10 MG/M2 AFTER TRANSPLANTATION
     Route: 065
  3. FLUDARABINE [Suspect]
     Active Substance: FLUDARABINE PHOSPHATE
     Indication: BONE MARROW CONDITIONING REGIMEN
     Dosage: 40 MG/(KG/M2) X4D
     Route: 065
  4. CYCLOSPORIN [Suspect]
     Active Substance: CYCLOSPORINE
     Indication: PROPHYLAXIS AGAINST GRAFT VERSUS HOST DISEASE
     Dosage: 15 MG/M2 AT 1 DAY (+ 1 DAY), + 3 DAYS, + 6 DAYS, AND + 11 DAYS 10 MG/M2 AFTER TRANSPLANTATION
     Route: 065
  5. BUSULFAN. [Suspect]
     Active Substance: BUSULFAN
     Indication: BONE MARROW CONDITIONING REGIMEN
     Dosage: NON?MYELOABLATIVE, USING BU 3. 2 TO 4. 0 MG/(KG/D) X 1D OR 2D; MYELOABLATIVE, USING BU 3. 2 TO 4. 4
     Route: 065
  6. MELPHALAN. [Suspect]
     Active Substance: MELPHALAN
     Indication: BONE MARROW CONDITIONING REGIMEN
     Dosage: 70 MG/(KG/M2) X2D
     Route: 065
  7. ANTITHYMOCYTE IMMUNOGLOBULIN (RABBIT) [Suspect]
     Active Substance: LAPINE T-LYMPHOCYTE IMMUNE GLOBULIN
     Indication: BONE MARROW CONDITIONING REGIMEN
     Dosage: NON?MYELOABLATIVE, USING 2. 5 MG/(KG/D) X4 DAYS; MYELOABLATIVE, USING 2. 5 MG/(KG/D) X 4 DAYS
     Route: 065
  8. METHOTREXATE. [Suspect]
     Active Substance: METHOTREXATE
     Indication: PROPHYLAXIS AGAINST GRAFT VERSUS HOST DISEASE
     Dosage: 15 MG/M2 AT 1 DAY (+ 1 DAY), + 3 DAYS, + 6 DAYS, AND + 11 DAYS 10 MG/M2 AFTER TRANSPLANTATION
     Route: 065

REACTIONS (7)
  - Cystitis haemorrhagic [Recovered/Resolved]
  - Gastroenteritis viral [Unknown]
  - Post transplant lymphoproliferative disorder [Unknown]
  - Cytomegalovirus viraemia [Unknown]
  - Haemolytic anaemia [Unknown]
  - Epstein-Barr viraemia [Unknown]
  - Off label use [Unknown]
